FAERS Safety Report 23696445 (Version 2)
Quarter: 2024Q2

REPORT INFORMATION
  Report Type: Spontaneous
  Country: DE (occurrence: DE)
  Receive Date: 20240402
  Receipt Date: 20240411
  Transmission Date: 20240716
  Serious: Yes (Hospitalization, Other)
  Sender: FDA-Public Use
  Company Number: None

PATIENT
  Age: 6 Year
  Sex: Female

DRUGS (24)
  1. CLOBAZAM [Interacting]
     Active Substance: CLOBAZAM
     Indication: Partial seizures
     Dosage: 2.5 MILLIGRAM, BID
     Route: 065
  2. CLOBAZAM [Interacting]
     Active Substance: CLOBAZAM
     Indication: Tuberous sclerosis complex
  3. EVEROLIMUS [Interacting]
     Active Substance: EVEROLIMUS
     Indication: Partial seizures
     Dosage: 0.3 MILLIGRAM/KILOGRAM, QD
     Route: 065
  4. EVEROLIMUS [Interacting]
     Active Substance: EVEROLIMUS
     Indication: Tuberous sclerosis complex
     Dosage: 0.6 MILLIGRAM/KILOGRAM, QD
     Route: 065
  5. EVEROLIMUS [Interacting]
     Active Substance: EVEROLIMUS
     Indication: Epilepsy
     Dosage: 0.15 MILLIGRAM/KILOGRAM, QD
     Route: 048
  6. EVEROLIMUS [Interacting]
     Active Substance: EVEROLIMUS
     Dosage: 5 MILLIGRAM, QD
     Route: 065
     Dates: start: 20190928
  7. EVEROLIMUS [Interacting]
     Active Substance: EVEROLIMUS
     Dosage: 0.13 MILLIGRAM/KILOGRAM
     Route: 065
  8. EVEROLIMUS [Interacting]
     Active Substance: EVEROLIMUS
     Dosage: UNK (DOSE REDUCED)
     Route: 065
  9. LACOSAMIDE [Suspect]
     Active Substance: LACOSAMIDE
     Indication: Partial seizures
     Dosage: UNK
     Route: 065
  10. LACOSAMIDE [Suspect]
     Active Substance: LACOSAMIDE
     Indication: Tuberous sclerosis complex
  11. LAMOTRIGINE [Suspect]
     Active Substance: LAMOTRIGINE
     Indication: Partial seizures
     Dosage: UNK
     Route: 065
  12. LAMOTRIGINE [Suspect]
     Active Substance: LAMOTRIGINE
     Indication: Tuberous sclerosis complex
  13. LEVETIRACETAM [Suspect]
     Active Substance: LEVETIRACETAM
     Indication: Partial seizures
     Dosage: UNK
     Route: 065
  14. OXCARBAZEPINE [Suspect]
     Active Substance: OXCARBAZEPINE
     Indication: Partial seizures
     Dosage: UNK
     Route: 065
  15. TOPIRAMATE [Suspect]
     Active Substance: TOPIRAMATE
     Indication: Partial seizures
     Dosage: UNK
     Route: 065
  16. VIGABATRIN [Suspect]
     Active Substance: VIGABATRIN
     Indication: Partial seizures
     Dosage: UNK
     Route: 065
  17. CANNABIDIOL [Interacting]
     Active Substance: CANNABIDIOL
     Indication: Partial seizures
     Dosage: UNK
     Route: 065
     Dates: start: 20180928
  18. CANNABIDIOL [Interacting]
     Active Substance: CANNABIDIOL
     Indication: Tuberous sclerosis complex
     Dosage: 500 MILLIGRAM, QD
     Route: 065
  19. CANNABIDIOL [Interacting]
     Active Substance: CANNABIDIOL
     Indication: Epilepsy
     Dosage: 200 MILLIGRAM, QD
     Route: 065
  20. CARBAMAZEPINE [Suspect]
     Active Substance: CARBAMAZEPINE
     Indication: Partial seizures
     Dosage: UNK
     Route: 065
  21. SULTHIAME [Suspect]
     Active Substance: SULTHIAME
     Indication: Partial seizures
     Dosage: UNK
     Route: 065
  22. VALPROATE [Suspect]
     Active Substance: VALPROIC ACID
     Indication: Partial seizures
     Dosage: UNK
     Route: 065
  23. ZONISAMIDE [Suspect]
     Active Substance: ZONISAMIDE
     Indication: Partial seizures
     Dosage: UNK
     Route: 065
  24. PROPRANOLOL [Concomitant]
     Active Substance: PROPRANOLOL HYDROCHLORIDE
     Indication: Tuberous sclerosis complex
     Dosage: UNK
     Route: 065

REACTIONS (10)
  - Tonic convulsion [Unknown]
  - Epilepsy [Unknown]
  - Drug ineffective [Unknown]
  - Drug level increased [Not Recovered/Not Resolved]
  - Drug level increased [Recovered/Resolved]
  - Off label use [Unknown]
  - Therapeutic product effective for unapproved indication [Unknown]
  - Drug interaction [Unknown]
  - Treatment failure [Unknown]
  - Drug interaction [Unknown]

NARRATIVE: CASE EVENT DATE: 20181027
